FAERS Safety Report 6313473-4 (Version None)
Quarter: 2009Q3

REPORT INFORMATION
  Report Type: 
  Country: None (occurrence: None)
  Receive Date: 20090814
  Receipt Date: 20090814
  Transmission Date: 20100115
  Serious: Yes (Hospitalization)
  Sender: FDA-Public Use
  Company Number: None

PATIENT
  Age: 22 Year
  Sex: Female
  Weight: 65.7716 kg

DRUGS (1)
  1. OCELLA DROSPIRENONE 3MG / BARR [Suspect]
     Indication: MUSCLE SPASMS
     Dosage: 1 TABELT ONCE A DAY PO
     Route: 048
     Dates: start: 20090601, end: 20090801

REACTIONS (1)
  - TRANSIENT ISCHAEMIC ATTACK [None]
